FAERS Safety Report 12508574 (Version 2)
Quarter: 2016Q3

REPORT INFORMATION
  Report Type: Report from Study
  Country: US (occurrence: US)
  Receive Date: 20160629
  Receipt Date: 20160919
  Transmission Date: 20161109
  Serious: Yes (Death, Hospitalization)
  Sender: FDA-Public Use
  Company Number: US-BAYER-2014-126453

PATIENT
  Age: 65 Year
  Sex: Female
  Weight: 72.56 kg

DRUGS (24)
  1. ADEMPAS [Suspect]
     Active Substance: RIOCIGUAT
     Indication: PULMONARY HYPERTENSION
     Dosage: UNK UNK, TID
     Route: 048
     Dates: start: 20131204
  2. AMITRIPTYLINE [Concomitant]
     Active Substance: AMITRIPTYLINE
     Dosage: UNK
  3. MIRALAX [Concomitant]
     Active Substance: POLYETHYLENE GLYCOL 3350
     Dosage: UNK
  4. SIMVASTATIN. [Concomitant]
     Active Substance: SIMVASTATIN
     Dosage: UNK
  5. TIOTROPIUM [Concomitant]
     Active Substance: TIOTROPIUM
     Dosage: UNK
  6. TRAZODONE [Concomitant]
     Active Substance: TRAZODONE HYDROCHLORIDE
     Dosage: UNK
  7. PREDNISONE. [Concomitant]
     Active Substance: PREDNISONE
     Dosage: UNK
  8. XARELTO [Concomitant]
     Active Substance: RIVAROXABAN
     Indication: ANTICOAGULANT THERAPY
     Dosage: 20 MG, QD
  9. ADEMPAS [Suspect]
     Active Substance: RIOCIGUAT
     Indication: PULMONARY HYPERTENSION
     Dosage: 2.5 MG, TID
     Route: 048
  10. ADEMPAS [Suspect]
     Active Substance: RIOCIGUAT
     Indication: PULMONARY HYPERTENSION
     Dosage: 2.5 MG, TID
     Route: 048
  11. ADEMPAS [Suspect]
     Active Substance: RIOCIGUAT
     Indication: PULMONARY HYPERTENSION
     Dosage: 2.5 MG, TID
     Route: 048
  12. LEVEMIR [Concomitant]
     Active Substance: INSULIN DETEMIR
     Indication: DIABETES MELLITUS
     Dosage: UNK
  13. LISINOPRIL. [Concomitant]
     Active Substance: LISINOPRIL
     Dosage: 20 MG, QD
  14. ALBUTEROL. [Concomitant]
     Active Substance: ALBUTEROL
     Dosage: UNK
  15. MVI [Concomitant]
     Active Substance: VITAMINS
     Dosage: UNK
  16. EXENATIDE [Concomitant]
     Active Substance: EXENATIDE
     Dosage: UNK
  17. HUMALOG [Concomitant]
     Active Substance: INSULIN LISPRO
     Dosage: UNK
  18. MODAFINIL. [Concomitant]
     Active Substance: MODAFINIL
     Dosage: UNK
  19. SYMBICORT [Concomitant]
     Active Substance: BUDESONIDE\FORMOTEROL FUMARATE DIHYDRATE
     Dosage: UNK
  20. OMEPRAZOLE. [Concomitant]
     Active Substance: OMEPRAZOLE
     Dosage: UNK
  21. K-DUR [Concomitant]
     Active Substance: POTASSIUM CHLORIDE
     Dosage: UNK
  22. PULMICORT TURBUHALER [Concomitant]
     Active Substance: BUDESONIDE
     Dosage: UNK
  23. ADEMPAS [Suspect]
     Active Substance: RIOCIGUAT
     Indication: PULMONARY HYPERTENSION
     Dosage: 2.5 MG, TID
     Route: 048
  24. FUROSEMIDE. [Concomitant]
     Active Substance: FUROSEMIDE
     Indication: DIURETIC THERAPY
     Dosage: 20 MG, BID

REACTIONS (12)
  - Musculoskeletal discomfort [None]
  - Pleural effusion [None]
  - Pulmonary veno-occlusive disease [None]
  - Oxygen saturation decreased [None]
  - Pleural effusion [None]
  - Shoulder arthroplasty [Recovered/Resolved]
  - Pericardial effusion [Recovered/Resolved]
  - Pleural effusion [Recovered/Resolved]
  - Pericardial effusion [None]
  - Pericardial effusion [None]
  - Pericardial effusion [Unknown]
  - Respiratory failure [Fatal]

NARRATIVE: CASE EVENT DATE: 20140731
